FAERS Safety Report 11075849 (Version 1)
Quarter: 2015Q2

REPORT INFORMATION
  Report Type: Spontaneous
  Country: FI (occurrence: FI)
  Receive Date: 20150429
  Receipt Date: 20150429
  Transmission Date: 20150821
  Serious: Yes (Other)
  Sender: FDA-Public Use
  Company Number: FI-BAYER-2015-136859

PATIENT
  Age: 23 Year
  Sex: Female

DRUGS (2)
  1. MIGARD [FROVATRIPTAN] [Concomitant]
     Indication: MIGRAINE
     Dosage: 2.5 MG, UNK
  2. QLAIRA [Suspect]
     Active Substance: DIENOGEST\ESTRADIOL VALERATE
     Dosage: UNK
     Dates: start: 20121008

REACTIONS (3)
  - Foetal malposition [None]
  - Pregnancy on oral contraceptive [Recovered/Resolved]
  - Drug ineffective [None]
